FAERS Safety Report 12082243 (Version 1)
Quarter: 2016Q1

REPORT INFORMATION
  Report Type: Spontaneous
  Country: FR (occurrence: FR)
  Receive Date: 20160217
  Receipt Date: 20160217
  Transmission Date: 20160526
  Serious: Yes (Death, Other)
  Sender: FDA-Public Use
  Company Number: FR-PAR PHARMACEUTICAL COMPANIES-2016SCPR015167

PATIENT

DRUGS (12)
  1. ADRENALIN [Suspect]
     Active Substance: EPINEPHRINE
     Indication: JOINT IRRIGATION
     Dosage: 1 MG/L, UNKNOWN
     Route: 014
  2. SUFENTANIL [Concomitant]
     Active Substance: SUFENTANIL
     Dosage: 10 MCG, UNKNOWN
     Route: 051
  3. CLONIDINE. [Concomitant]
     Active Substance: CLONIDINE
     Indication: NERVE BLOCK
     Dosage: 60 MCG, SINGLE
     Route: 065
  4. ROPIVACAINE HCL [Concomitant]
     Active Substance: ROPIVACAINE HYDROCHLORIDE
     Indication: LOCAL ANAESTHESIA
     Dosage: 3.75 MG/ML, SINGLE, INTERSCALENE PLEXUS BLOCK
  5. PROPOFOL. [Concomitant]
     Active Substance: PROPOFOL
     Indication: GENERAL ANAESTHESIA
     Dosage: UNK, UNKNOWN
     Route: 051
  6. ACEBUTOLOL [Concomitant]
     Active Substance: ACEBUTOLOL
     Indication: PREMEDICATION
     Dosage: 200 MG, SINGLE
     Route: 048
  7. LIDOCAINE HYDROCHLORIDE AND EPINEPHRINE [Concomitant]
     Active Substance: EPINEPHRINE\EPINEPHRINE BITARTRATE\LIDOCAINE HYDROCHLORIDE\LIDOCAINE HYDROCHLORIDE ANHYDROUS
     Indication: LOCAL ANAESTHESIA
     Dosage: UNK UNK, SINGLE, INTERSCALENE PLEXUS BLOCK
  8. CISATRACURIUM. [Concomitant]
     Active Substance: CISATRACURIUM
     Indication: GENERAL ANAESTHESIA
     Dosage: UNK, UNKNOWN
     Route: 051
  9. SUFENTANIL [Concomitant]
     Active Substance: SUFENTANIL
     Indication: GENERAL ANAESTHESIA
     Dosage: UNK, UNKNOWN
     Route: 051
  10. ALPRAZOLAM. [Concomitant]
     Active Substance: ALPRAZOLAM
     Indication: PREMEDICATION
     Dosage: 0.5 MG, SINGLE
     Route: 048
  11. CIMETIDINE [Concomitant]
     Active Substance: CIMETIDINE
     Indication: PREMEDICATION
     Dosage: 400 MG, SINGLE
     Route: 048
  12. PROPOFOL. [Concomitant]
     Active Substance: PROPOFOL
     Dosage: 10 MG, UNKNOWN
     Route: 051

REACTIONS (5)
  - Multiple organ dysfunction syndrome [Unknown]
  - Off label use [Unknown]
  - Cardiogenic shock [Fatal]
  - Stress cardiomyopathy [Fatal]
  - Disseminated intravascular coagulation [Unknown]
